FAERS Safety Report 24798087 (Version 3)
Quarter: 2025Q1

REPORT INFORMATION
  Report Type: Spontaneous
  Country: US (occurrence: US)
  Receive Date: 20250102
  Receipt Date: 20250124
  Transmission Date: 20250408
  Serious: No
  Sender: APOTEX
  Company Number: US-APOTEX-2024AP019670

PATIENT
  Sex: Female

DRUGS (1)
  1. DOXAZOSIN [Suspect]
     Active Substance: DOXAZOSIN MESYLATE
     Indication: Hypertension
     Dosage: 1 MILLIGRAM, QD
     Route: 048
     Dates: start: 20241206, end: 20241207

REACTIONS (6)
  - Lip dry [Recovered/Resolved]
  - Asthenia [Recovered/Resolved]
  - Illness [Recovered/Resolved]
  - Product taste abnormal [Recovered/Resolved]
  - Dry mouth [Recovered/Resolved]
  - Drug ineffective [Unknown]

NARRATIVE: CASE EVENT DATE: 20241206
